FAERS Safety Report 11908683 (Version 2)
Quarter: 2016Q1

REPORT INFORMATION
  Report Type: Spontaneous
  Country: FR (occurrence: FR)
  Receive Date: 20160111
  Receipt Date: 20160113
  Transmission Date: 20160526
  Serious: Yes (Hospitalization)
  Sender: FDA-Public Use
  Company Number: FR-009507513-1601FRA001992

PATIENT
  Age: 86 Year
  Sex: Female

DRUGS (2)
  1. JANUVIA [Suspect]
     Active Substance: SITAGLIPTIN PHOSPHATE
     Indication: DIABETES MELLITUS
     Dosage: 1 DF DAILY
     Route: 048
     Dates: end: 20150714
  2. HEMI-DAONIL [Concomitant]
     Active Substance: GLYBURIDE
     Indication: DIABETES MELLITUS
     Dosage: 2 DF DAILY
     Route: 048
     Dates: end: 20150721

REACTIONS (1)
  - Pemphigoid [Recovered/Resolved]

NARRATIVE: CASE EVENT DATE: 20150623
